FAERS Safety Report 7863589-6 (Version None)
Quarter: 2011Q4

REPORT INFORMATION
  Report Type: 
  Country: None (occurrence: None)
  Receive Date: 20111027
  Receipt Date: 20101207
  Transmission Date: 20120403
  Serious: Yes (Hospitalization)
  Sender: FDA-Public Use
  Company Number: US-AMGEN-USASP2010008020

PATIENT
  Sex: Male

DRUGS (1)
  1. ENBREL [Suspect]
     Dates: start: 20101201

REACTIONS (1)
  - SINUSITIS [None]
